FAERS Safety Report 8118390-5 (Version None)
Quarter: 2012Q1

REPORT INFORMATION
  Report Type: 
  Country: None (occurrence: None)
  Receive Date: 20120207
  Receipt Date: 20120130
  Transmission Date: 20120608
  Serious: Yes (Hospitalization, Other)
  Sender: FDA-Public Use
  Company Number: US-BAYER-201035539NA

PATIENT
  Age: 18 Year
  Sex: Female
  Weight: 58.05 kg

DRUGS (11)
  1. DROSPIRENONE AND ETHINYL ESTRADIOL [Suspect]
  2. CHLORZOXAZONE [Concomitant]
     Dosage: 500 MG, TID
     Route: 048
  3. SEASONIQUE [Concomitant]
  4. IBUPROFEN [Concomitant]
     Indication: CHEST PAIN
     Dosage: 800 MG, TID
     Route: 048
     Dates: start: 20090928
  5. OMEPRAZOLE [Concomitant]
     Dosage: 20 MG, QD
     Route: 048
  6. LO/OVRAL [Concomitant]
  7. DROSPIRENONE AND ETHINYL ESTRADIOL [Suspect]
     Indication: PREMENSTRUAL SYNDROME
     Dosage: UNK
     Route: 048
     Dates: start: 20090501, end: 20090701
  8. ORTHO TRI-CYCLEN LO [Concomitant]
     Indication: MENSTRUAL CYCLE MANAGEMENT
     Dosage: UNK
     Dates: start: 20051201, end: 20090501
  9. NAPROXEN [Concomitant]
     Dosage: 500 MG, BID
     Route: 048
  10. FERROUS SULFATE TAB [Concomitant]
     Dosage: 325 MG, QD
     Route: 048
  11. MOTRIN [Concomitant]
     Indication: CHEST PAIN
     Dosage: 800 MG, PRN

REACTIONS (4)
  - GENERAL PHYSICAL HEALTH DETERIORATION [None]
  - PAIN [None]
  - CHOLECYSTITIS CHRONIC [None]
  - GALLBLADDER INJURY [None]
